FAERS Safety Report 6682363-X (Version None)
Quarter: 2010Q2

REPORT INFORMATION
  Report Type: 
  Country: None (occurrence: None)
  Receive Date: 20100415
  Receipt Date: 20100407
  Transmission Date: 20101027
  Serious: Yes (Other)
  Sender: FDA-Public Use
  Company Number: CA-PFIZER INC-2010044058

PATIENT
  Age: 71 Year
  Sex: Female

DRUGS (2)
  1. NORVASC [Suspect]
     Dosage: UNK
     Dates: start: 20100101
  2. ATENOLOL [Concomitant]
     Dosage: UNK

REACTIONS (1)
  - RAYNAUD'S PHENOMENON [None]
